FAERS Safety Report 18133590 (Version 1)
Quarter: 2020Q3

REPORT INFORMATION
  Report Type: Report from Study
  Country: None (occurrence: US)
  Receive Date: 20200811
  Receipt Date: 20200811
  Transmission Date: 20201103
  Serious: Yes (Other)
  Sender: FDA-Public Use
  Company Number: US-INSMED, INC.-US-INS-20-00020

PATIENT
  Age: 62 Year
  Sex: Male

DRUGS (3)
  1. ARIKAYCE [Suspect]
     Active Substance: AMIKACIN
     Route: 055
     Dates: start: 20200624, end: 202007
  2. ARIKAYCE [Suspect]
     Active Substance: AMIKACIN
     Route: 055
     Dates: start: 202007, end: 20200728
  3. ARIKAYCE [Suspect]
     Active Substance: AMIKACIN
     Indication: MYCOBACTERIUM AVIUM COMPLEX INFECTION
     Route: 055
     Dates: start: 2019, end: 20200622

REACTIONS (3)
  - Pulmonary haemorrhage [Unknown]
  - Product dose omission issue [Unknown]
  - Haemoptysis [Recovered/Resolved]

NARRATIVE: CASE EVENT DATE: 201910
